FAERS Safety Report 9705762 (Version 2)
Quarter: 2015Q3

REPORT INFORMATION
  Report Type: Spontaneous
  Country: US (occurrence: US)
  Receive Date: 20131122
  Receipt Date: 20150803
  Transmission Date: 20151125
  Serious: No
  Sender: FDA-Public Use
  Company Number: US-GILEAD-2008-0017985

PATIENT
  Age: 63 Year
  Sex: Female
  Weight: 48.99 kg

DRUGS (11)
  1. ADVAIR DISKUS [Concomitant]
     Active Substance: FLUTICASONE PROPIONATE\SALMETEROL XINAFOATE
     Route: 048
  2. RAPAMUNE [Concomitant]
     Active Substance: SIROLIMUS
     Route: 048
  3. NEXIUM [Concomitant]
     Active Substance: ESOMEPRAZOLE MAGNESIUM
     Route: 048
  4. PROCRIT [Concomitant]
     Active Substance: ERYTHROPOIETIN
  5. DOMPERIDONE POWDER [Concomitant]
     Route: 048
  6. VITAMIN D [Concomitant]
     Active Substance: CHOLECALCIFEROL
     Route: 048
  7. ZEMPLAR [Concomitant]
     Active Substance: PARICALCITOL
     Route: 048
  8. CALCIUM +D [Concomitant]
     Active Substance: CALCIUM\VITAMIN D
     Route: 048
  9. LETAIRIS [Suspect]
     Active Substance: AMBRISENTAN
     Indication: PULMONARY ARTERIAL HYPERTENSION
     Route: 048
     Dates: start: 20080315
  10. REMERON [Concomitant]
     Active Substance: MIRTAZAPINE
     Route: 048
  11. FERROUS SULFATE [Concomitant]
     Active Substance: FERROUS SULFATE\FERROUS SULFATE, DRIED
     Route: 048

REACTIONS (1)
  - Oedema [None]
